FAERS Safety Report 9648717 (Version 11)
Quarter: 2016Q3

REPORT INFORMATION
  Report Type: Report from Study
  Country: US (occurrence: US)
  Receive Date: 20131028
  Receipt Date: 20160727
  Transmission Date: 20161109
  Serious: Yes (Life-Threatening, Hospitalization, Disabling)
  Sender: FDA-Public Use
  Company Number: US-ACTELION-A-US2013-90089

PATIENT
  Age: 66 Year
  Sex: Female

DRUGS (5)
  1. SILDENAFIL. [Concomitant]
     Active Substance: SILDENAFIL
  2. TRACLEER [Suspect]
     Active Substance: BOSENTAN
     Indication: PULMONARY ARTERIAL HYPERTENSION
     Dosage: UNK
     Route: 048
     Dates: start: 20071013
  3. TRACLEER [Suspect]
     Active Substance: BOSENTAN
     Dosage: 125 MG, BID
     Route: 048
     Dates: start: 201406
  4. COUMADIN [Concomitant]
     Active Substance: WARFARIN SODIUM
  5. TYVASO [Concomitant]
     Active Substance: TREPROSTINIL
     Dosage: UNK

REACTIONS (8)
  - Atrial fibrillation [Recovering/Resolving]
  - Heart rate increased [Unknown]
  - Pulmonary oedema [Unknown]
  - Epistaxis [Unknown]
  - Dyspnoea [Unknown]
  - Cardiac failure congestive [Unknown]
  - Fluid overload [Unknown]
  - Respiratory failure [Recovering/Resolving]

NARRATIVE: CASE EVENT DATE: 20130918
